FAERS Safety Report 19038776 (Version 1)
Quarter: 2021Q1

REPORT INFORMATION
  Report Type: Spontaneous
  Country: JP (occurrence: JP)
  Receive Date: 20210322
  Receipt Date: 20210322
  Transmission Date: 20210420
  Serious: Yes (Hospitalization)
  Sender: FDA-Public Use
  Company Number: JP-ELI_LILLY_AND_COMPANY-JP202103009458

PATIENT
  Age: 84 Year
  Sex: Female
  Weight: 57 kg

DRUGS (13)
  1. ATORVASTATIN [Concomitant]
     Active Substance: ATORVASTATIN
     Dosage: 5 MG, EACH MORNING
     Route: 048
     Dates: end: 20201110
  2. TAKECAB [Concomitant]
     Active Substance: VONOPRAZAN FUMARATE
     Dosage: 10 MG, OTHER
     Route: 048
     Dates: start: 201701, end: 20201110
  3. JANUVIA [Concomitant]
     Active Substance: SITAGLIPTIN PHOSPHATE
     Dosage: 25 MG, EACH MORNING
     Route: 048
     Dates: end: 20201110
  4. SHAKUYAKUKANZOTO [Concomitant]
     Active Substance: HERBALS
     Dosage: 1 DOSAGE FORM, EACH EVENING
     Dates: end: 20201110
  5. CALONAL [Suspect]
     Active Substance: ACETAMINOPHEN
     Indication: HEADACHE
     Dosage: 500 MG, PRN
     Route: 048
     Dates: start: 20201029, end: 20201110
  6. SERTRALINE [Concomitant]
     Active Substance: SERTRALINE HYDROCHLORIDE
     Dosage: 25 MG, EACH EVENING
     Route: 048
     Dates: start: 202008, end: 20201110
  7. SG [APRONAL;CAFFEINE;PARACETAMOL;PROPYPHENAZONE] [Suspect]
     Active Substance: ACETAMINOPHEN\APRONALIDE\CAFFEINE\PROPYPHENAZONE
     Indication: HEADACHE
     Dosage: 1 DOSAGE FORM, EACH EVENING
     Route: 048
     Dates: start: 20201024, end: 20201107
  8. ZOLPIDEM TARTRATE. [Concomitant]
     Active Substance: ZOLPIDEM TARTRATE
     Dosage: 5 MG, EACH EVENING
     Route: 048
     Dates: start: 202003, end: 20201110
  9. KARY UNI [Concomitant]
     Active Substance: PIRENOXINE
     Dosage: UNK UNK, BID
     Route: 047
     Dates: end: 20201110
  10. LACRIMIN [Concomitant]
     Active Substance: BENOXINATE HYDROCHLORIDE
     Dosage: UNK UNK, BID
     Route: 047
     Dates: end: 20201110
  11. DULOXETINE HYDROCHLORIDE. [Suspect]
     Active Substance: DULOXETINE HYDROCHLORIDE
     Indication: PRODUCT USED FOR UNKNOWN INDICATION
     Dosage: 40 MG, EACH EVENING
     Route: 048
     Dates: end: 20201110
  12. TELMISARTAN. [Concomitant]
     Active Substance: TELMISARTAN
     Dosage: 20 MG, EACH MORNING
     Route: 048
     Dates: end: 20201110
  13. LIXIANA [Concomitant]
     Active Substance: EDOXABAN TOSYLATE
     Dosage: 30 MG, EACH MORNING
     Route: 048
     Dates: end: 20201110

REACTIONS (2)
  - Agranulocytosis [Recovered/Resolved]
  - Headache [Unknown]

NARRATIVE: CASE EVENT DATE: 20201024
